FAERS Safety Report 21260548 (Version 4)
Quarter: 2022Q3

REPORT INFORMATION
  Report Type: Spontaneous
  Country: GB (occurrence: GB)
  Receive Date: 20220826
  Receipt Date: 20220929
  Transmission Date: 20221027
  Serious: Yes (Death, Other)
  Sender: FDA-Public Use
  Company Number: GB-REC-ISN-NCA-2019-0059

PATIENT
  Age: 37 Year
  Sex: Male

DRUGS (17)
  1. AMIKACIN SULFATE [Suspect]
     Active Substance: AMIKACIN SULFATE
     Indication: Tuberculosis
     Dosage: UNK, 2X/DAY (EVERY 12 HOURS)
  2. AMIKACIN SULFATE [Suspect]
     Active Substance: AMIKACIN SULFATE
     Dosage: EVERY DAY
  3. LEVOFLOXACIN [Suspect]
     Active Substance: LEVOFLOXACIN
     Indication: Tuberculosis
     Dosage: EVERY 12 HOURS
  4. DEXAMETHASONE SODIUM PHOSPHATE [Suspect]
     Active Substance: DEXAMETHASONE SODIUM PHOSPHATE
     Indication: Tuberculosis of central nervous system
     Dosage: 16 MG, BID
  5. DEXAMETHASONE SODIUM PHOSPHATE [Suspect]
     Active Substance: DEXAMETHASONE SODIUM PHOSPHATE
     Dosage: 32 MG, 1X/DAY
  6. DEXAMETHASONE SODIUM PHOSPHATE [Suspect]
     Active Substance: DEXAMETHASONE SODIUM PHOSPHATE
     Dosage: 8 MG, 3X/DAY  (8 MG, TID)
  7. ETHAMBUTOL [Suspect]
     Active Substance: ETHAMBUTOL HYDROCHLORIDE
     Indication: Disseminated tuberculosis
     Dosage: UNK, 2X/DAY (EVERY 12 HOURS)
  8. ETHAMBUTOL [Suspect]
     Active Substance: ETHAMBUTOL HYDROCHLORIDE
     Dosage: EVERY DAY
  9. ISONIAZID [Suspect]
     Active Substance: ISONIAZID
     Indication: Disseminated tuberculosis
     Dosage: UNK, 2X/DAY (EVERY 12 HOURS)
  10. ISONIAZID [Suspect]
     Active Substance: ISONIAZID
     Dosage: EVERY DAY
  11. MOXIFLOXACIN [Suspect]
     Active Substance: MOXIFLOXACIN
     Indication: Tuberculosis of central nervous system
     Dosage: UNK
  12. PYRAZINAMIDE [Suspect]
     Active Substance: PYRAZINAMIDE
     Indication: Disseminated tuberculosis
     Dosage: EVERY DAY
  13. RIFAMPIN [Suspect]
     Active Substance: RIFAMPIN
     Indication: Disseminated tuberculosis
     Dosage: EVERY 12 HOURS
  14. RIFAMPIN [Suspect]
     Active Substance: RIFAMPIN
     Dosage: EVERY DAY
  15. ISONIAZID\RIFAMPIN [Suspect]
     Active Substance: ISONIAZID\RIFAMPIN
     Indication: Disseminated tuberculosis
     Dosage: UNK
  16. THALIDOMIDE [Suspect]
     Active Substance: THALIDOMIDE
     Indication: Tuberculosis of central nervous system
     Dosage: 50 MG, 2X/DAY
  17. THALIDOMIDE [Suspect]
     Active Substance: THALIDOMIDE
     Dosage: 200 MG, 2X/DAY

REACTIONS (12)
  - Cardiac arrest [Fatal]
  - Brain oedema [Fatal]
  - Thalamic infarction [Fatal]
  - Immune reconstitution inflammatory syndrome [Fatal]
  - Tuberculosis of central nervous system [Fatal]
  - Hydrocephalus [Fatal]
  - Somnolence [Fatal]
  - Drug ineffective for unapproved indication [Fatal]
  - Vasculitis [Fatal]
  - Condition aggravated [Fatal]
  - Drug resistance [Fatal]
  - Coma scale abnormal [Fatal]
